FAERS Safety Report 5767440-X (Version None)
Quarter: 2008Q2

REPORT INFORMATION
  Report Type: 
  Country: None (occurrence: None)
  Receive Date: 20080612
  Receipt Date: 20080610
  Transmission Date: 20081010
  Serious: Yes (Hospitalization, Other)
  Sender: FDA-Public Use
  Company Number: DZ-BRISTOL-MYERS SQUIBB COMPANY-14118780

PATIENT
  Age: 47 Year
  Sex: Female
  Weight: 108 kg

DRUGS (8)
  1. ELISOR [Suspect]
     Indication: DYSLIPIDAEMIA
     Dosage: 1DOSAGE FORM= 1TABLET
     Dates: start: 20060215, end: 20080106
  2. GLUCOPHAGE [Suspect]
     Indication: OBESITY
     Route: 048
     Dates: start: 20071106, end: 20080106
  3. GLUCOPHAGE [Suspect]
     Indication: INFERTILITY
     Route: 048
     Dates: start: 20071106, end: 20080106
  4. ACETAMINOPHEN [Suspect]
     Dates: end: 20080101
  5. HYDROCORTISONE [Suspect]
     Dates: end: 20080101
  6. LEVOTHYROXINE SODIUM [Suspect]
     Indication: HYPOTHYROIDISM
     Route: 048
     Dates: start: 20020101
  7. FERRO SANOL [Suspect]
     Indication: ANAEMIA
     Dosage: 1 DOSAGE FORM = 1 CAPSULE
     Route: 048
     Dates: start: 20070326, end: 20080101
  8. NUTROPIN [Concomitant]
     Indication: HYPOPITUITARISM
     Route: 048
     Dates: start: 20071107

REACTIONS (9)
  - ABDOMINAL PAIN [None]
  - ALANINE AMINOTRANSFERASE INCREASED [None]
  - ASPARTATE AMINOTRANSFERASE INCREASED [None]
  - ASTHENIA [None]
  - BLOOD ALKALINE PHOSPHATASE INCREASED [None]
  - BLOOD CREATINE PHOSPHOKINASE INCREASED [None]
  - BLOOD LACTATE DEHYDROGENASE INCREASED [None]
  - MYALGIA [None]
  - VOMITING [None]
